FAERS Safety Report 9927325 (Version 2)
Quarter: 2014Q1

REPORT INFORMATION
  Report Type: Spontaneous
  Country: BR (occurrence: BR)
  Receive Date: 20140226
  Receipt Date: 20140320
  Transmission Date: 20141002
  Serious: Yes (Hospitalization)
  Sender: FDA-Public Use
  Company Number: BR-BIOMARINAP-BR-2014-102597

PATIENT
  Age: 10 Month
  Sex: Male
  Weight: 6.4 kg

DRUGS (7)
  1. NAGLAZYME [Suspect]
     Indication: MUCOPOLYSACCHARIDOSIS VI
     Dosage: 10 MG, QW
     Route: 041
     Dates: start: 20130819
  2. AEROLIN [Concomitant]
     Indication: PRODUCT USED FOR UNKNOWN INDICATION
  3. FLIXOTIDE [Concomitant]
     Indication: PRODUCT USED FOR UNKNOWN INDICATION
  4. SERETIDE [Concomitant]
     Indication: PRODUCT USED FOR UNKNOWN INDICATION
  5. ALDACTONE                          /00006201/ [Concomitant]
     Indication: PRODUCT USED FOR UNKNOWN INDICATION
  6. TYLENOL                            /00020001/ [Concomitant]
     Indication: PREMEDICATION
  7. HIXIZINE [Concomitant]
     Indication: PREMEDICATION

REACTIONS (2)
  - Respiratory failure [Recovering/Resolving]
  - Tachypnoea [Recovering/Resolving]
